FAERS Safety Report 16119126 (Version 1)
Quarter: 2019Q1

REPORT INFORMATION
  Report Type: Spontaneous
  Country: FR (occurrence: FR)
  Receive Date: 20190326
  Receipt Date: 20190326
  Transmission Date: 20190418
  Serious: Yes (Hospitalization)
  Sender: FDA-Public Use
  Company Number: FR-TEVA-2019-FR-1029677

PATIENT
  Age: 27 Year
  Sex: Female
  Weight: 43 kg

DRUGS (2)
  1. FLUOXETINE [Suspect]
     Active Substance: FLUOXETINE HYDROCHLORIDE
     Indication: POISONING DELIBERATE
     Route: 048
     Dates: start: 20181110, end: 20181110
  2. LYSANXIA 10 MG, COMPRIME [Suspect]
     Active Substance: PRAZEPAM
     Indication: POISONING DELIBERATE
     Route: 048
     Dates: start: 20181110, end: 20181110

REACTIONS (3)
  - Hypertonia [Recovered/Resolved]
  - Trismus [Recovered/Resolved]
  - Somnolence [Recovered/Resolved]

NARRATIVE: CASE EVENT DATE: 20181110
